FAERS Safety Report 7124382-5 (Version None)
Quarter: 2010Q4

REPORT INFORMATION
  Report Type: 
  Country: None (occurrence: None)
  Receive Date: 20101126
  Receipt Date: 20101123
  Transmission Date: 20110411
  Serious: Yes (Hospitalization)
  Sender: FDA-Public Use
  Company Number: GXKR2009DE02691

PATIENT
  Age: 54 Year
  Sex: Male
  Weight: 78 kg

DRUGS (12)
  1. FURORESE (NGX) [Interacting]
     Indication: RENAL IMPAIRMENT
     Dosage: 40 MG, QD
     Route: 048
     Dates: start: 20080301, end: 20080821
  2. HYDROCHLOROTHIAZIDE [Interacting]
     Indication: HYPERTENSION
     Dosage: 25 MG, QD
     Route: 048
     Dates: start: 20080301, end: 20080821
  3. BISOPROLOL FUMARATE [Suspect]
     Indication: CORONARY ARTERY DISEASE
     Dosage: 5 MG, BID
     Route: 048
  4. RAMIPRIL [Interacting]
     Indication: HYPERTENSION
     Dosage: 5 MG, QD
     Route: 048
     Dates: start: 19900101
  5. FALITHROM ^HEXAL^ [Concomitant]
     Indication: PULMONARY EMBOLISM
     Route: 048
  6. BEROTEC [Concomitant]
     Indication: CHRONIC OBSTRUCTIVE PULMONARY DISEASE
  7. NEURONTIN [Concomitant]
     Indication: POLYNEUROPATHY ALCOHOLIC
     Dosage: 600 MG, TID
     Route: 048
  8. PANTOPRAZOLE SODIUM [Concomitant]
     Indication: PROPHYLAXIS AGAINST GASTROINTESTINAL ULCER
     Dosage: 40 MG, QD
     Route: 048
  9. PREGABALIN [Concomitant]
     Indication: POLYNEUROPATHY ALCOHOLIC
     Dosage: 50 MG, TID
     Route: 048
  10. SIFROL [Concomitant]
     Indication: POLYNEUROPATHY ALCOHOLIC
     Dosage: 0.18 MG, QD
     Route: 048
  11. SIMVASTATIN [Concomitant]
     Indication: CORONARY ARTERY DISEASE
     Dosage: 20 MG, QD
     Route: 048
  12. SPIRIVA [Concomitant]
     Indication: CHRONIC OBSTRUCTIVE PULMONARY DISEASE

REACTIONS (1)
  - DEHYDRATION [None]
